FAERS Safety Report 5027201-6 (Version None)
Quarter: 2006Q2

REPORT INFORMATION
  Report Type: 
  Country: None (occurrence: None)
  Receive Date: 20060501
  Receipt Date: 20051226
  Transmission Date: 20061013
  Serious: No
  Sender: FDA-Public Use
  Company Number: 2005PV006204

PATIENT
  Age: 54 Year
  Sex: Male
  Weight: 100.6985 kg

DRUGS (3)
  1. SYMLIN [Suspect]
     Indication: DIABETES MELLITUS INSULIN-DEPENDENT
     Dosage: 24 MCG;BID;SC
     Route: 058
     Dates: start: 20051216
  2. HUMALOG [Concomitant]
  3. LANTUS [Concomitant]

REACTIONS (2)
  - NAUSEA [None]
  - WEIGHT DECREASED [None]
